FAERS Safety Report 5623172-X (Version None)
Quarter: 2008Q1

REPORT INFORMATION
  Report Type: 
  Country: None (occurrence: None)
  Receive Date: 20080207
  Receipt Date: 20080130
  Transmission Date: 20080703
  Serious: Yes (Hospitalization, Other)
  Sender: FDA-Public Use
  Company Number: 163-C5013-08010323

PATIENT
  Age: 81 Year
  Sex: Female

DRUGS (5)
  1. CC-5013 (LENALIDOMIDE) (CAPSULES) [Suspect]
     Indication: MYELODYSPLASTIC SYNDROME
     Dosage: 5 MG, QD, ORAL
     Route: 048
     Dates: start: 20040219, end: 20080104
  2. TOPROL-XL [Concomitant]
  3. PLAVIX [Concomitant]
  4. SOTALOL HCL [Concomitant]
  5. TEVETEN [Concomitant]

REACTIONS (5)
  - BLOOD POTASSIUM DECREASED [None]
  - ELECTROLYTE IMBALANCE [None]
  - HYPERTENSION [None]
  - HYPONATRAEMIA [None]
  - PARAESTHESIA [None]
